FAERS Safety Report 7574896-9 (Version None)
Quarter: 2011Q2

REPORT INFORMATION
  Report Type: 
  Country: None (occurrence: None)
  Receive Date: 20110627
  Receipt Date: 20110610
  Transmission Date: 20111010
  Serious: Yes (Hospitalization)
  Sender: FDA-Public Use
  Company Number: SG-BAYER-2011-050335

PATIENT
  Sex: Male

DRUGS (2)
  1. AVELOX [Suspect]
     Indication: INFLUENZA LIKE ILLNESS
     Dosage: 400 MG, UNK
     Route: 048
     Dates: start: 20110501
  2. AVELOX [Suspect]
     Dosage: 400 MG, UNK
     Dates: start: 20110610

REACTIONS (6)
  - ANAPHYLACTIC REACTION [None]
  - RASH [None]
  - HEART RATE IRREGULAR [None]
  - OEDEMA PERIPHERAL [None]
  - PARAESTHESIA [None]
  - ERYTHEMA [None]
